FAERS Safety Report 25258480 (Version 1)
Quarter: 2025Q2

REPORT INFORMATION
  Report Type: Spontaneous
  Country: JP (occurrence: JP)
  Receive Date: 20250501
  Receipt Date: 20250501
  Transmission Date: 20250717
  Serious: Yes (Hospitalization, Other)
  Sender: AMGEN
  Company Number: JP-Horizon-BUP-0041-2017

PATIENT
  Age: 59 Year
  Sex: Female
  Weight: 45 kg

DRUGS (20)
  1. SODIUM PHENYLBUTYRATE [Suspect]
     Active Substance: SODIUM PHENYLBUTYRATE
     Indication: Carbamoyl phosphate synthetase deficiency
     Dosage: 4500 MILLIGRAM, QD
     Route: 048
     Dates: start: 20160701, end: 20180813
  2. SODIUM PHENYLBUTYRATE [Suspect]
     Active Substance: SODIUM PHENYLBUTYRATE
     Indication: Urea cycle disorder
     Dosage: 18000 MILLIGRAM
     Route: 065
  3. ARGININE HYDROCHLORIDE [Concomitant]
     Active Substance: ARGININE HYDROCHLORIDE
  4. LEVOCARNITINE [Concomitant]
     Active Substance: LEVOCARNITINE
     Dosage: 8 G, QD
     Route: 042
     Dates: start: 20160705, end: 20160720
  5. LEVOCARNITINE [Concomitant]
     Active Substance: LEVOCARNITINE
     Route: 048
  6. PREDONINE [Concomitant]
     Active Substance: PREDNISOLONE
     Dosage: 6 MG
     Route: 048
  7. RIFAXIMIN [Concomitant]
     Active Substance: RIFAXIMIN
     Dosage: 2 DOSAGE FORM, TID
     Route: 048
  8. ZOLPIDEM TARTRATE [Concomitant]
     Active Substance: ZOLPIDEM TARTRATE
     Dosage: .5 DOSAGE FORM, QD
     Route: 048
  9. DIMETHICONE [Concomitant]
     Active Substance: DIMETHICONE
     Dosage: 40 MG, TID
     Route: 048
  10. VONOPRAZAN FUMARATE [Concomitant]
     Active Substance: VONOPRAZAN FUMARATE
     Dosage: 20 MG, QD
     Route: 048
  11. BEZAFIBRATE [Concomitant]
     Active Substance: BEZAFIBRATE
     Dosage: 200 MG, BID
     Route: 048
  12. LACTITOL [Concomitant]
     Active Substance: LACTITOL
     Dosage: 12 MG, QD
     Route: 048
  13. KETOPROFEN [Concomitant]
     Active Substance: KETOPROFEN
     Dosage: 1 DOSAGE FORM, QD
     Route: 003
  14. DEXTROSE [Concomitant]
     Active Substance: DEXTROSE MONOHYDRATE
     Dosage: 1000 ML, QD
     Route: 042
  15. RITUXAN [Concomitant]
     Active Substance: RITUXIMAB
     Route: 042
     Dates: start: 20180808, end: 20180808
  16. PREDNISOLONE [Concomitant]
     Active Substance: PREDNISOLONE
     Dosage: 4.0-7.5 MILLIGRAM, QD
  17. Sugar [Concomitant]
  18. LACTULOSE [Concomitant]
     Active Substance: LACTULOSE
  19. ARGININE [Concomitant]
     Active Substance: ARGININE
     Dosage: 12000 MILLIGRAM, QD
  20. LEVOCARNITINE [Concomitant]
     Active Substance: LEVOCARNITINE
     Dosage: 12000 MILLIGRAM, QD

REACTIONS (11)
  - Hypokalaemia [Recovered/Resolved]
  - Vomiting [Unknown]
  - Hyperammonaemia [Recovered/Resolved]
  - Urinary tract infection [Recovered/Resolved]
  - White blood cell count decreased [Recovered/Resolved]
  - Hyperuricaemia [Recovered/Resolved]
  - Upper respiratory tract inflammation [Unknown]
  - Pyrexia [Unknown]
  - Dehydration [Unknown]
  - Diarrhoea [Unknown]
  - Bronchitis [Unknown]

NARRATIVE: CASE EVENT DATE: 20160721
